FAERS Safety Report 6679473-X (Version None)
Quarter: 2010Q2

REPORT INFORMATION
  Report Type: 
  Country: None (occurrence: None)
  Receive Date: 20100413
  Receipt Date: 20100331
  Transmission Date: 20101027
  Serious: Yes (Hospitalization, Other)
  Sender: FDA-Public Use
  Company Number: PHEH2007US13698

PATIENT
  Sex: Female
  Weight: 64.399 kg

DRUGS (39)
  1. AREDIA [Suspect]
     Indication: METASTASES TO BONE
     Dosage: 90 MG, QMO
     Route: 042
     Dates: start: 20010801, end: 20041011
  2. ZOMETA [Suspect]
     Dosage: 4 MG, UNK
     Route: 042
     Dates: start: 20020524
  3. ARIMIDEX [Concomitant]
     Dosage: UNK
     Dates: start: 20010801
  4. FASLODEX [Concomitant]
     Dosage: 250 MG, QMO
     Route: 030
     Dates: start: 20041213
  5. NAVELBINE [Concomitant]
     Dosage: UNK, UNK
  6. TAXOTERE [Concomitant]
     Dosage: 20 MG, UNK
  7. GEMZAR [Concomitant]
  8. DOCETAXEL [Concomitant]
     Dosage: UNK
  9. MIACALCIN [Concomitant]
     Dosage: UNK
  10. HYDROCODONE BITARTRATE [Suspect]
     Dosage: 5 MG, PRN
     Route: 048
  11. ANASTROZOLE [Concomitant]
  12. GEMCITABINE HCL [Concomitant]
  13. CELEBREX [Concomitant]
  14. ULTRACET [Concomitant]
  15. AROMASIN [Concomitant]
  16. AMOXICILLIN [Concomitant]
  17. PERIDEX [Concomitant]
  18. FOSAMAX [Concomitant]
  19. ANCEF [Concomitant]
  20. TEQUIN [Concomitant]
  21. MAXIPIME [Concomitant]
  22. NEURONTIN [Concomitant]
  23. SOMA [Concomitant]
  24. SKELAXIN [Concomitant]
  25. DURAGESIC-100 [Concomitant]
     Dosage: UNK
  26. LORCET-HD [Concomitant]
     Dosage: UNK
  27. LORTAB [Concomitant]
     Dosage: UNK
  28. CYCLOBENZAPRINE [Suspect]
  29. EFFEXOR XR [Concomitant]
  30. AMBIEN [Concomitant]
  31. PROMETHAZINE [Concomitant]
  32. CLOBETASOL PROPIONATE [Concomitant]
  33. CEPHALEXIN [Concomitant]
  34. DIAZEPAM [Concomitant]
  35. PROPOXYPHENE NAPSYLATE W/ ACETAMINOPHEN [Concomitant]
  36. MELOXICAM [Concomitant]
  37. TRAMADOL HCL [Concomitant]
  38. ACYCLOVIR [Concomitant]
  39. DIFLUCAN [Concomitant]

REACTIONS (44)
  - ANAEMIA [None]
  - ARTERIOSCLEROSIS [None]
  - ARTHRALGIA [None]
  - ARTHRITIS [None]
  - BACK PAIN [None]
  - BONE DEBRIDEMENT [None]
  - BONE GRAFT [None]
  - BONE SCAN ABNORMAL [None]
  - CHEST PAIN [None]
  - CHRONIC OBSTRUCTIVE PULMONARY DISEASE [None]
  - COMPUTERISED TOMOGRAM ABNORMAL [None]
  - CORONARY ARTERY DISEASE [None]
  - DEEP VEIN THROMBOSIS [None]
  - DENTAL IMPLANTATION [None]
  - DEPRESSIVE SYMPTOM [None]
  - DEVICE FAILURE [None]
  - DEVICE RELATED INFECTION [None]
  - FACE AND MOUTH X-RAY ABNORMAL [None]
  - FATIGUE [None]
  - GINGIVAL INFECTION [None]
  - GINGIVAL OEDEMA [None]
  - GINGIVAL RECESSION [None]
  - HYPERBARIC OXYGEN THERAPY [None]
  - HYPERCOAGULATION [None]
  - IMPAIRED HEALING [None]
  - LOCALISED INFECTION [None]
  - LOOSE TOOTH [None]
  - LUNG NEOPLASM [None]
  - METASTASES TO BONE [None]
  - METASTASES TO CENTRAL NERVOUS SYSTEM [None]
  - OSTEITIS [None]
  - OSTEOMYELITIS [None]
  - OSTEONECROSIS [None]
  - OSTEOPOROSIS [None]
  - OSTEOSCLEROSIS [None]
  - PNEUMOTHORAX [None]
  - RECTAL HAEMORRHAGE [None]
  - SPINAL FUSION SURGERY [None]
  - SURGERY [None]
  - SWELLING [None]
  - SYNOVIAL CYST [None]
  - TENDERNESS [None]
  - TOOTH EXTRACTION [None]
  - WEIGHT DECREASED [None]
